FAERS Safety Report 6802149 (Version 5)
Quarter: 2012Q4

REPORT INFORMATION
  Report Type: 
  Country: CA (occurrence: CA)
  Receive Date: 20081103
  Receipt Date: 20121111
  Transmission Date: 20130627
  Serious: Yes (Hospitalization)
  Sender: FDA-Public Use
  Company Number: PHHY2008CA26280

PATIENT
  Sex: Male

DRUGS (1)
  1. SANDOSTATIN LAR [Suspect]
     Indication: NEUROENDOCRINE TUMOUR
     Dosage: 20 mg, QMO
     Route: 030
     Dates: start: 20080226

REACTIONS (15)
  - Streptococcal infection [Unknown]
  - Face oedema [Recovering/Resolving]
  - Oedema peripheral [Recovering/Resolving]
  - Serum sickness [Unknown]
  - Arthralgia [Unknown]
  - Liver disorder [Unknown]
  - Hypoaesthesia [Unknown]
  - Blood pressure increased [Unknown]
  - Fatigue [Unknown]
  - Burning sensation [Unknown]
  - Flushing [Unknown]
  - Pain [Unknown]
  - Dysuria [Unknown]
  - Blood glucose decreased [Unknown]
  - Heart rate increased [Unknown]
